FAERS Safety Report 8688760 (Version 2)
Quarter: 2012Q4

REPORT INFORMATION
  Report Type: 
  Country: JP (occurrence: JP)
  Receive Date: 20120727
  Receipt Date: 20121228
  Transmission Date: 20130627
  Serious: Yes (Disabling)
  Sender: FDA-Public Use
  Company Number: JP-ALLERGAN-1210205US

PATIENT
  Age: 42 Year
  Sex: Female

DRUGS (2)
  1. ALESION TABLET [Suspect]
     Indication: DERMATITIS ATOPIC
     Dosage: 20 mg, qd
     Route: 048
     Dates: start: 20071108, end: 20120604
  2. HICEE [Concomitant]
     Indication: POST INFLAMMATORY PIGMENTATION CHANGE
     Dosage: 750 mg, UNK
     Route: 048
     Dates: start: 20120131

REACTIONS (3)
  - Hepatic function abnormal [Recovered/Resolved]
  - Malaise [Recovered/Resolved]
  - Decreased appetite [Recovered/Resolved]
